FAERS Safety Report 14244515 (Version 4)
Quarter: 2018Q1

REPORT INFORMATION
  Report Type: Report from Study
  Country: US (occurrence: US)
  Receive Date: 20171201
  Receipt Date: 20180111
  Transmission Date: 20180508
  Serious: Yes (Death, Hospitalization)
  Sender: FDA-Public Use
  Company Number: US-TESARO, INC-US-2017TSO03532

PATIENT
  Age: 32 Year
  Sex: Female

DRUGS (29)
  1. NIRAPARIB [Suspect]
     Active Substance: NIRAPARIB
     Indication: TRIPLE NEGATIVE BREAST CANCER
     Dosage: 200 MG, QD
     Route: 048
     Dates: start: 20170914, end: 20171024
  2. ASPIRIN                            /00002701/ [Concomitant]
     Active Substance: ASPIRIN
     Indication: THROMBOSIS
     Dosage: 81 MG, QD
     Route: 048
     Dates: start: 20171010
  3. MULTIVITAMIN                       /07504101/ [Concomitant]
     Active Substance: VITAMINS
     Indication: SUPPLEMENTATION THERAPY
     Dosage: 1 DF, QD
     Route: 048
     Dates: start: 201703
  4. HYDROMORPHONE [Concomitant]
     Active Substance: HYDROMORPHONE
     Indication: PAIN
     Dosage: 1 MG, PRN
     Route: 042
     Dates: start: 20171003
  5. TRAMADOL. [Concomitant]
     Active Substance: TRAMADOL
     Indication: PAIN
     Dosage: 50 MG, PRN
     Route: 048
     Dates: start: 20171003
  6. ACETAMINOPHEN. [Concomitant]
     Active Substance: ACETAMINOPHEN
     Indication: HEADACHE
     Dosage: 1000 MG, TID
     Route: 048
     Dates: start: 20171003
  7. ONDANSETRON [Concomitant]
     Active Substance: ONDANSETRON
     Indication: NAUSEA
     Dosage: 4 MG, PRN
     Route: 042
     Dates: start: 20171003, end: 20171005
  8. KETOROLAC [Concomitant]
     Active Substance: KETOROLAC\KETOROLAC TROMETHAMINE
     Indication: HEADACHE
     Dosage: 15 MG, PRN
     Route: 042
     Dates: start: 20171004, end: 20171005
  9. HYDROCODONE/HOMATROPINE [Concomitant]
     Active Substance: HOMATROPINE METHYLBROMIDE\HYDROCODONE BITARTRATE
     Indication: COUGH
     Dosage: 5 ML, PRN
     Route: 048
     Dates: start: 20171004
  10. OMEPRAZOLE. [Concomitant]
     Active Substance: OMEPRAZOLE
     Indication: NAUSEA
     Dosage: 20 MG, QD
     Route: 048
     Dates: start: 20171005, end: 20171019
  11. PEMBROLIZUMAB. [Suspect]
     Active Substance: PEMBROLIZUMAB
     Dosage: 200 MG, EVERY 3 WEEKS
     Route: 042
     Dates: start: 20171024, end: 20171024
  12. METOCLOPRAMIDE. [Concomitant]
     Active Substance: METOCLOPRAMIDE
     Indication: NAUSEA
     Dosage: 10 MG, PRN
     Route: 042
     Dates: start: 20171004, end: 20171005
  13. SENOKOT [Concomitant]
     Active Substance: SENNOSIDES
     Indication: CONSTIPATION PROPHYLAXIS
     Dosage: 17.2 MG, QHS
     Route: 048
     Dates: start: 20171004
  14. OXYCODONE [Concomitant]
     Active Substance: OXYCODONE
     Indication: HEADACHE
     Dosage: 5 MG, PRN
     Route: 048
     Dates: start: 20171004
  15. CODEINE PHOSPHATE [Concomitant]
     Active Substance: CODEINE PHOSPHATE
     Indication: COUGH
     Dosage: 10 ML, PRN
     Route: 048
     Dates: start: 20170816
  16. HYDROMORPHONE [Concomitant]
     Active Substance: HYDROMORPHONE
     Indication: HEADACHE
     Dosage: 0.5 MG, PRN
     Route: 042
     Dates: start: 20171003
  17. BENZONATATE. [Concomitant]
     Active Substance: BENZONATATE
     Indication: COUGH
     Dosage: 100 MG, TID
     Route: 048
     Dates: start: 20171003
  18. TINZAPARIN [Concomitant]
     Active Substance: TINZAPARIN
     Indication: THROMBOSIS
     Dosage: 11000 IU, QD
     Route: 058
     Dates: start: 20170713, end: 20171010
  19. GADOBUTROL [Concomitant]
     Active Substance: GADOBUTROL
     Indication: THERAPEUTIC PROCEDURE
     Dosage: 6 ML, SINGLE
     Route: 042
     Dates: start: 20171004, end: 20171004
  20. LORAZEPAM. [Concomitant]
     Active Substance: LORAZEPAM
     Indication: ANXIETY
     Dosage: 0.5 MG, PRN
     Route: 042
     Dates: start: 20171003, end: 20171005
  21. PEMBROLIZUMAB. [Suspect]
     Active Substance: PEMBROLIZUMAB
     Indication: TRIPLE NEGATIVE BREAST CANCER
     Dosage: 200 MG, EVERY 3 WEEKS
     Route: 042
     Dates: start: 20170914, end: 20170914
  22. DOCUSATE [Concomitant]
     Active Substance: DOCUSATE
     Indication: CONSTIPATION PROPHYLAXIS
     Dosage: 100 MG, BID
     Route: 048
     Dates: start: 20171004
  23. ADVIL (MEFENAMIC ACID) [Concomitant]
     Active Substance: MEFENAMIC ACID
     Indication: PAIN
     Dosage: 400 MG, PRN
     Route: 048
     Dates: start: 201707
  24. PROCHLORPERAZINE. [Concomitant]
     Active Substance: PROCHLORPERAZINE
     Indication: NAUSEA
     Dosage: 10 MG, PRN
     Route: 042
     Dates: start: 20171004, end: 20171005
  25. GUAIFENESIN/CODEINE [Concomitant]
     Active Substance: CODEINE PHOSPHATE\GUAIFENESIN
     Indication: COUGH
     Dosage: 10 ML, PRN
     Route: 048
     Dates: start: 20171004, end: 20171005
  26. PHOENIX LAGRIMAS                   /00134201/ [Concomitant]
     Indication: PRODUCT USED FOR UNKNOWN INDICATION
     Dosage: UNK
     Dates: start: 201708
  27. BIOTIN [Concomitant]
     Active Substance: BIOTIN
     Indication: SUPPLEMENTATION THERAPY
     Dosage: 1 DF, QD
     Route: 048
     Dates: start: 201703
  28. TRAMADOL. [Concomitant]
     Active Substance: TRAMADOL
     Indication: HEADACHE
  29. DEXTROSA AL 5% Y CLORURO DE SODIO AL 0.9% [Concomitant]
     Indication: DEHYDRATION
     Dosage: 150 ML, HOURLY
     Route: 042
     Dates: start: 20171004, end: 20171005

REACTIONS (1)
  - Acute respiratory distress syndrome [Fatal]

NARRATIVE: CASE EVENT DATE: 20171024
